FAERS Safety Report 14862108 (Version 1)
Quarter: 2018Q2

REPORT INFORMATION
  Report Type: Spontaneous
  Country: US (occurrence: US)
  Receive Date: 20180508
  Receipt Date: 20180508
  Transmission Date: 20180711
  Serious: Yes (Other)
  Sender: FDA-Public Use
  Company Number: PHEH2018US016822

PATIENT

DRUGS (1)
  1. AMPHETAMINE+DEXTROAMPHETAMINE [Suspect]
     Active Substance: AMPHETAMINE ADIPATE\DEXTROAMPHETAMINE
     Indication: PRODUCT USED FOR UNKNOWN INDICATION
     Dosage: UNK
     Route: 065

REACTIONS (8)
  - Dyspepsia [Unknown]
  - Rash [Unknown]
  - Change in sustained attention [Unknown]
  - Oral discomfort [Unknown]
  - Migraine [Unknown]
  - Weight increased [Unknown]
  - Drug ineffective [Unknown]
  - Vision blurred [Unknown]
